FAERS Safety Report 25965695 (Version 1)
Quarter: 2025Q4

REPORT INFORMATION
  Report Type: Spontaneous
  Country: JP (occurrence: JP)
  Receive Date: 20251027
  Receipt Date: 20251027
  Transmission Date: 20260118
  Serious: Yes (Death, Hospitalization, Other)
  Sender: TAKEDA
  Company Number: JP-TAKEDA-2025TJP010754

PATIENT
  Age: 53 Year
  Sex: Female

DRUGS (1)
  1. FRUZAQLA [Suspect]
     Active Substance: FRUQUINTINIB
     Indication: Colorectal cancer
     Dosage: 5 MILLIGRAM, QD
     Dates: start: 20250513, end: 20250614

REACTIONS (2)
  - Colorectal cancer [Fatal]
  - Ureteric rupture [Recovered/Resolved]

NARRATIVE: CASE EVENT DATE: 20250614
